FAERS Safety Report 5811772-3 (Version None)
Quarter: 2008Q3

REPORT INFORMATION
  Report Type: 
  Country: None (occurrence: None)
  Receive Date: 20080715
  Receipt Date: 20080715
  Transmission Date: 20090109
  Serious: No
  Sender: FDA-Public Use
  Company Number: None

PATIENT
  Sex: Male
  Weight: 55.7 kg

DRUGS (4)
  1. 5-FLUOROURACIL (5-FU) [Suspect]
     Dosage: 4659 MG
  2. ERBITUX [Suspect]
     Dosage: 830 MG
  3. LEUCOVORIN CALCIUM [Suspect]
     Dosage: 670 MG
  4. ELOXATIN [Suspect]
     Dosage: 80 MG

REACTIONS (9)
  - ANAEMIA [None]
  - ASTHENIA [None]
  - DIARRHOEA [None]
  - FATIGUE [None]
  - HYPOALBUMINAEMIA [None]
  - HYPOKALAEMIA [None]
  - HYPOMAGNESAEMIA [None]
  - NEUTROPENIA [None]
  - WEIGHT DECREASED [None]
